FAERS Safety Report 12787039 (Version 1)
Quarter: 2016Q3

REPORT INFORMATION
  Report Type: Spontaneous
  Country: SE (occurrence: SE)
  Receive Date: 20160928
  Receipt Date: 20160928
  Transmission Date: 20161109
  Serious: Yes (Other)
  Sender: FDA-Public Use
  Company Number: SE-RARE DISEASE THERAPEUTICS, INC.-1057802

PATIENT
  Age: 5 Year
  Sex: Female

DRUGS (1)
  1. PURIXAN [Suspect]
     Active Substance: MERCAPTOPURINE
     Indication: LEUKAEMIA
     Route: 048

REACTIONS (4)
  - Product formulation issue [Unknown]
  - Therapeutic response decreased [Unknown]
  - Blood count abnormal [Unknown]
  - Product colour issue [Unknown]
